FAERS Safety Report 23426626 (Version 1)
Quarter: 2024Q1

REPORT INFORMATION
  Report Type: Spontaneous
  Country: CA (occurrence: CA)
  Receive Date: 20240122
  Receipt Date: 20240122
  Transmission Date: 20240409
  Serious: Yes (Other)
  Sender: FDA-Public Use
  Company Number: CA-JNJFOC-20240139316

PATIENT
  Age: 56 Year
  Sex: Female

DRUGS (4)
  1. TYLENOL [Suspect]
     Active Substance: ACETAMINOPHEN
     Indication: Abdominal discomfort
     Route: 065
  2. ENTYVIO [Suspect]
     Active Substance: VEDOLIZUMAB
     Indication: Colitis ulcerative
     Route: 042
  3. ENTYVIO [Suspect]
     Active Substance: VEDOLIZUMAB
     Route: 042
  4. PARA-AMINOSALICYLIC ACID [Concomitant]
     Active Substance: AMINOSALICYLIC ACID
     Indication: Product used for unknown indication
     Route: 065

REACTIONS (12)
  - Abdominal discomfort [Unknown]
  - Arthralgia [Unknown]
  - Chest discomfort [Unknown]
  - Colitis ulcerative [Unknown]
  - Dyspnoea [Unknown]
  - Flatulence [Unknown]
  - Frequent bowel movements [Unknown]
  - Haematochezia [Unknown]
  - Influenza like illness [Unknown]
  - Muscle spasms [Unknown]
  - Rectal haemorrhage [Unknown]
  - Off label use [Unknown]
